FAERS Safety Report 12209013 (Version 1)
Quarter: 2016Q1

REPORT INFORMATION
  Report Type: Spontaneous
  Country: US (occurrence: US)
  Receive Date: 20160324
  Receipt Date: 20160324
  Transmission Date: 20160526
  Serious: No
  Sender: FDA-Public Use
  Company Number: US-WARNER CHILCOTT, LLC-1049639

PATIENT
  Age: 68 Year
  Sex: Female

DRUGS (2)
  1. VITAMINS NOS [Concomitant]
     Active Substance: VITAMINS
  2. ESTRACE [Suspect]
     Active Substance: ESTRADIOL
     Indication: INCONTINENCE
     Route: 067
     Dates: start: 201004

REACTIONS (1)
  - Vulvovaginal burning sensation [Not Recovered/Not Resolved]
